FAERS Safety Report 11704251 (Version 1)
Quarter: 2015Q4

REPORT INFORMATION
  Report Type: Report from Study
  Country: US (occurrence: US)
  Receive Date: 20151106
  Receipt Date: 20151106
  Transmission Date: 20160304
  Serious: Yes (Other)
  Sender: FDA-Public Use
  Company Number: US-AMGEN-USASL2015115639

PATIENT
  Age: 55 Year
  Sex: Male

DRUGS (1)
  1. ENBREL [Suspect]
     Active Substance: ETANERCEPT
     Indication: RHEUMATOID ARTHRITIS
     Dosage: 50 MG, QWK
     Route: 065
     Dates: start: 20151013

REACTIONS (7)
  - Nausea [Unknown]
  - Weight decreased [Unknown]
  - Diabetes mellitus [Unknown]
  - Frequent bowel movements [Unknown]
  - Pain in extremity [Unknown]
  - Feeding disorder [Unknown]
  - Back pain [Unknown]

NARRATIVE: CASE EVENT DATE: 201510
